FAERS Safety Report 18714325 (Version 4)
Quarter: 2021Q1

REPORT INFORMATION
  Report Type: Spontaneous
  Country: US (occurrence: US)
  Receive Date: 20210108
  Receipt Date: 20210304
  Transmission Date: 20210419
  Serious: No
  Sender: FDA-Public Use
  Company Number: US-JNJFOC-20210104411

PATIENT
  Age: 70 Year
  Sex: Female
  Weight: 86.26 kg

DRUGS (4)
  1. TREMFYA [Suspect]
     Active Substance: GUSELKUMAB
     Indication: PSORIASIS
     Route: 058
     Dates: start: 202011
  2. TREMFYA [Suspect]
     Active Substance: GUSELKUMAB
  3. TREMFYA [Suspect]
     Active Substance: GUSELKUMAB
     Indication: PSORIASIS
     Route: 058
  4. TREMFYA [Suspect]
     Active Substance: GUSELKUMAB

REACTIONS (6)
  - Psoriasis [Unknown]
  - Device issue [Unknown]
  - Underdose [Unknown]
  - Accidental exposure to product [Unknown]
  - Alopecia [Unknown]
  - Weight decreased [Unknown]
